FAERS Safety Report 6557417-9 (Version None)
Quarter: 2010Q1

REPORT INFORMATION
  Report Type: 
  Country: None (occurrence: None)
  Receive Date: 20100127
  Receipt Date: 20100127
  Transmission Date: 20100710
  Serious: Yes (Other)
  Sender: FDA-Public Use
  Company Number: None

PATIENT
  Sex: Male
  Weight: 49.4421 kg

DRUGS (1)
  1. TOBI [Suspect]
     Indication: PSEUDOMONAS INFECTION
     Dosage: 1 VIAL TWICE DAILY INHAL
     Route: 055
     Dates: start: 20091204, end: 20091209

REACTIONS (5)
  - DIZZINESS [None]
  - GAIT DISTURBANCE [None]
  - INNER EAR DISORDER [None]
  - NAUSEA [None]
  - TINNITUS [None]
